FAERS Safety Report 5889156-1 (Version None)
Quarter: 2008Q3

REPORT INFORMATION
  Report Type: 
  Country: None (occurrence: None)
  Receive Date: 20080919
  Receipt Date: 20080915
  Transmission Date: 20090109
  Serious: Yes (Other)
  Sender: FDA-Public Use
  Company Number: US-BAYER-200830702NA

PATIENT
  Sex: Male

DRUGS (9)
  1. AVELOX [Suspect]
     Indication: RHINORRHOEA
     Dosage: TOTAL DAILY DOSE: 400 MG  UNIT DOSE: 400 MG
     Route: 048
  2. AVELOX [Suspect]
     Route: 048
  3. DIOVAN HCT [Concomitant]
  4. TRICOR [Concomitant]
  5. VYTORIN [Concomitant]
  6. NEXIUM [Concomitant]
  7. GLUCOPHAGE [Concomitant]
  8. MULTI-VITAMIN [Concomitant]
  9. GLUCOSAMINE CHONDROITIN [Concomitant]

REACTIONS (10)
  - ABDOMINAL PAIN UPPER [None]
  - CHEST DISCOMFORT [None]
  - DIARRHOEA [None]
  - FLUSHING [None]
  - HYPERHIDROSIS [None]
  - HYPERSENSITIVITY [None]
  - OEDEMA PERIPHERAL [None]
  - PRURITUS GENERALISED [None]
  - SWELLING FACE [None]
  - VISION BLURRED [None]
